FAERS Safety Report 18121976 (Version 1)
Quarter: 2020Q3

REPORT INFORMATION
  Report Type: Spontaneous
  Country: US (occurrence: US)
  Receive Date: 20200807
  Receipt Date: 20200807
  Transmission Date: 20201103
  Serious: No
  Sender: FDA-Public Use
  Company Number: US-GILEAD-2020-0489044

PATIENT
  Sex: Male

DRUGS (14)
  1. MANNITOL. [Concomitant]
     Active Substance: MANNITOL
  2. MAGNESIUM SULFATE. [Concomitant]
     Active Substance: MAGNESIUM SULFATE
  3. DEXAMETHASONE SODIUM PHOSPHATE. [Concomitant]
     Active Substance: DEXAMETHASONE SODIUM PHOSPHATE
  4. CISPLATIN. [Concomitant]
     Active Substance: CISPLATIN
  5. ECOTRIN [Concomitant]
     Active Substance: ASPIRIN
  6. PALONOSETRON HYDROCHLORIDE. [Concomitant]
     Active Substance: PALONOSETRON HYDROCHLORIDE
  7. PLAVIX [Concomitant]
     Active Substance: CLOPIDOGREL BISULFATE
  8. ETOPOSIDE. [Concomitant]
     Active Substance: ETOPOSIDE
  9. APREPITANT. [Concomitant]
     Active Substance: APREPITANT
  10. VITAMIN D NOS [Concomitant]
     Active Substance: VITAMIN D NOS
  11. ZOFRAN [Concomitant]
     Active Substance: ONDANSETRON HYDROCHLORIDE
  12. SODIUM CHLORIDE. [Concomitant]
     Active Substance: SODIUM CHLORIDE
  13. VEMLIDY [Suspect]
     Active Substance: TENOFOVIR ALAFENAMIDE FUMARATE
     Indication: HIV INFECTION
     Dosage: 25 MG, QD
     Route: 048
     Dates: start: 201802
  14. CLARITIN [CLARITHROMYCIN] [Concomitant]
     Active Substance: CLARITHROMYCIN

REACTIONS (2)
  - Cough [Unknown]
  - Off label use [Not Recovered/Not Resolved]
